FAERS Safety Report 9652575 (Version 2)
Quarter: 2013Q4

REPORT INFORMATION
  Report Type: Report from Study
  Country: US (occurrence: US)
  Receive Date: 20131029
  Receipt Date: 20131105
  Transmission Date: 20140711
  Serious: Yes (Hospitalization)
  Sender: FDA-Public Use
  Company Number: US-ACTELION-A-NJ2013-90455

PATIENT
  Age: 82 Year
  Sex: Female

DRUGS (2)
  1. VENTAVIS [Suspect]
     Indication: PULMONARY ARTERIAL HYPERTENSION
     Dosage: 10 MCG, 5XDAY
     Route: 055
     Dates: start: 2009
  2. COUMADIN [Concomitant]

REACTIONS (2)
  - Knee operation [Recovering/Resolving]
  - Rehabilitation therapy [Unknown]
